FAERS Safety Report 9011800 (Version 2)
Quarter: 2013Q1

REPORT INFORMATION
  Report Type: Spontaneous
  Country: US (occurrence: None)
  Receive Date: 20121220
  Receipt Date: 20121220
  Transmission Date: 20140127
  Serious: Yes (Other)
  Sender: FDA-Public Use
  Company Number: JPI-P-026605

PATIENT
  Age: 22 Year
  Sex: Female
  Weight: 47.63 kg

DRUGS (12)
  1. XYREM [Suspect]
     Indication: CATAPLEXY
     Dosage: 4.5 GM (2.25 GM, 2 IN 1 D), ORAL
     Dates: start: 20120305, end: 2012
  2. XYREM [Suspect]
     Dosage: 4.5 GM (2.25 GM, 2 IN 1 D), ORAL
     Dates: start: 20120305, end: 2012
  3. XYREM (500 MILLIGRAM/MILLILITERS, SOLUTION) (SODIUM OXYBATE) [Suspect]
     Dosage: 5.5 GM (2.75 GM, 2 IN 1 D), ORAL
     Dates: start: 2012, end: 2012
  4. ZOLOFT (SERTRALINE HYDROCHLORIDE) [Suspect]
     Indication: GENERALISED ANXIETY DISORDER
     Route: 048
     Dates: start: 201203, end: 20121019
  5. BUSPAR [Suspect]
     Indication: GENERALISED ANXIETY DISORDER
     Dosage: 30 MG (15 MG, 2 IN 1 D), ORAL
     Dates: start: 201210, end: 2012
  6. RITALIN (METHYLPHENIDATE) [Concomitant]
  7. CLONAZEPAM [Concomitant]
  8. DICYCLOMINE [Concomitant]
  9. SEASONIQUE (LEVONORGESTREL) [Concomitant]
  10. ELAVIL (AMITRIPTYLINE) [Concomitant]
  11. EFFEXOR (VENLAFAXINE HYDROCHLORIDE) UNKNOWN [Concomitant]
  12. CYMBALTA (DULOXETINE HYDROCHLORIDE) [Concomitant]

REACTIONS (15)
  - Fatigue [None]
  - Anxiety [None]
  - Dehydration [None]
  - Gastrointestinal viral infection [None]
  - Retching [None]
  - Vomiting [None]
  - Nausea [None]
  - Narcolepsy [None]
  - Abdominal pain upper [None]
  - Dizziness [None]
  - Somnolence [None]
  - Feeling drunk [None]
  - Drug ineffective [None]
  - Drug interaction [None]
  - Condition aggravated [None]
